FAERS Safety Report 16973005 (Version 2)
Quarter: 2019Q4

REPORT INFORMATION
  Report Type: Spontaneous
  Country: US (occurrence: US)
  Receive Date: 20191030
  Receipt Date: 20191128
  Transmission Date: 20200122
  Serious: No
  Sender: FDA-Public Use
  Company Number: US-BIOGEN-2019BI00800296

PATIENT
  Sex: Female

DRUGS (1)
  1. TYSABRI [Suspect]
     Active Substance: NATALIZUMAB
     Indication: MULTIPLE SCLEROSIS
     Route: 042
     Dates: start: 20180330

REACTIONS (9)
  - Dysarthria [Unknown]
  - Central nervous system lesion [Unknown]
  - Dyspepsia [Unknown]
  - Memory impairment [Unknown]
  - Stress [Unknown]
  - Confusional state [Unknown]
  - Multiple sclerosis [Unknown]
  - Diarrhoea [Unknown]
  - Asthenia [Unknown]
